FAERS Safety Report 6878129-8 (Version None)
Quarter: 2010Q2

REPORT INFORMATION
  Report Type: 
  Country: None (occurrence: None)
  Receive Date: 20100616
  Receipt Date: 20100304
  Transmission Date: 20101027
  Serious: No
  Sender: FDA-Public Use
  Company Number: DSA_42731_2010

PATIENT
  Sex: Male

DRUGS (9)
  1. XENAZINE [Suspect]
     Indication: STIFF-MAN SYNDROME
     Dosage: 12.5 MG ORAL, 1/2 OF 12.5 MG TABLET ORAL
     Route: 048
     Dates: start: 20090909
  2. XENAZINE [Suspect]
     Indication: STIFF-MAN SYNDROME
     Dosage: 12.5 MG ORAL, 1/2 OF 12.5 MG TABLET ORAL
     Route: 048
     Dates: start: 20100101
  3. MINOXIDIL [Concomitant]
  4. DIOVAN [Concomitant]
  5. TOPROL-XL [Concomitant]
  6. BUMEX [Concomitant]
  7. DRUG INTOLERANCE [Concomitant]
  8. ABDOMINAL DISCOMFORT [Concomitant]
  9. DEPRESSION [Concomitant]

REACTIONS (5)
  - ABDOMINAL DISCOMFORT [None]
  - DEPRESSION [None]
  - DRUG ADMINISTRATION ERROR [None]
  - DRUG INEFFECTIVE FOR UNAPPROVED INDICATION [None]
  - DRUG INTOLERANCE [None]
